FAERS Safety Report 12487433 (Version 1)
Quarter: 2016Q2

REPORT INFORMATION
  Report Type: Spontaneous
  Country: DE (occurrence: DE)
  Receive Date: 20160622
  Receipt Date: 20160622
  Transmission Date: 20160815
  Serious: Yes (Death, Life-Threatening, Hospitalization)
  Sender: FDA-Public Use
  Company Number: DE-CIPLA LTD.-2016DE07135

PATIENT

DRUGS (7)
  1. OXALIPLATIN. [Suspect]
     Active Substance: OXALIPLATIN
     Indication: CHOLANGIOCARCINOMA
     Dosage: 130 MG/M2, 2 HR INFUSION, ON DAY 1 OF EACH 21-DAY TREATMENT CYCLE
     Route: 042
  2. CARBOPLATIN. [Suspect]
     Active Substance: CARBOPLATIN
     Indication: CHOLANGIOCARCINOMA
     Dosage: UNK
  3. EPIRUBICIN [Suspect]
     Active Substance: EPIRUBICIN
     Indication: CHOLANGIOCARCINOMA
     Dosage: 50 MG/M2, UNK, ON DAY 1 OF EACH 21-DAY TREATMENT CYCLE
     Route: 040
  4. TS-1 [Suspect]
     Active Substance: GIMERACIL\OTERACIL\TEGAFUR
     Indication: NEOPLASM
     Dosage: 25 MG/M2, BID
     Route: 048
  5. GEMCITABINE [Suspect]
     Active Substance: GEMCITABINE\GEMCITABINE HYDROCHLORIDE
     Dosage: UNK
  6. ERLOTINIB [Suspect]
     Active Substance: ERLOTINIB
     Indication: CHOLANGIOCARCINOMA
     Dosage: UNK
  7. CAPECITABINE. [Suspect]
     Active Substance: CAPECITABINE
     Indication: CHOLANGIOCARCINOMA
     Dosage: UNK

REACTIONS (6)
  - Sepsis [Unknown]
  - Pneumonia [Fatal]
  - Cholangitis [Unknown]
  - Condition aggravated [Unknown]
  - Febrile neutropenia [Unknown]
  - Thrombocytopenia [Unknown]
